FAERS Safety Report 12665276 (Version 1)
Quarter: 2016Q3

REPORT INFORMATION
  Report Type: Spontaneous
  Country: US (occurrence: US)
  Receive Date: 20160818
  Receipt Date: 20160818
  Transmission Date: 20161109
  Serious: Yes (Other)
  Sender: FDA-Public Use
  Company Number: US-UNITED THERAPEUTICS-UNT-2016-009774

PATIENT
  Age: 45 Year
  Sex: Female
  Weight: 62.13 kg

DRUGS (5)
  1. REMODULIN [Suspect]
     Active Substance: TREPROSTINIL
     Dosage: 0.112 ?G/KG, CONTINUING
     Route: 041
  2. DULCOLAX (BISACODYL) [Suspect]
     Active Substance: BISACODYL
     Indication: CONSTIPATION
     Route: 065
  3. REMODULIN [Suspect]
     Active Substance: TREPROSTINIL
     Indication: PULMONARY ARTERIAL HYPERTENSION
     Dosage: 0.107 ?G/KG, CONTINUING
     Route: 041
     Dates: start: 20140723
  4. OPSUMIT [Concomitant]
     Active Substance: MACITENTAN
     Indication: PRODUCT USED FOR UNKNOWN INDICATION
  5. REMODULIN [Suspect]
     Active Substance: TREPROSTINIL
     Dosage: 0.134 ?G/KG, CONTINUING
     Route: 041

REACTIONS (10)
  - Liver disorder [Unknown]
  - Abdominal discomfort [Not Recovered/Not Resolved]
  - Overdose [Unknown]
  - Hypotension [Unknown]
  - Presyncope [Unknown]
  - Constipation [Unknown]
  - Hot flush [Unknown]
  - Haematochezia [Unknown]
  - Heart rate increased [Unknown]
  - Vomiting [Unknown]

NARRATIVE: CASE EVENT DATE: 201606
